FAERS Safety Report 23420624 (Version 2)
Quarter: 2024Q1

REPORT INFORMATION
  Report Type: Spontaneous
  Country: DE (occurrence: DE)
  Receive Date: 20240119
  Receipt Date: 20240306
  Transmission Date: 20240410
  Serious: Yes (Life-Threatening, Hospitalization, Other)
  Sender: FDA-Public Use
  Company Number: DE-SAMSUNG BIOEPIS-SB-2023-26304

PATIENT
  Age: 66 Year
  Sex: Male
  Weight: 124 kg

DRUGS (8)
  1. FLUOROURACIL [Suspect]
     Active Substance: FLUOROURACIL
     Indication: Oesophageal adenocarcinoma
     Dosage: 5200 MG
     Route: 042
     Dates: start: 20230523, end: 20230705
  2. LEUCOVORIN CALCIUM [Suspect]
     Active Substance: LEUCOVORIN CALCIUM
     Indication: Oesophageal adenocarcinoma
     Dosage: 400.000MG
     Route: 042
     Dates: start: 20230523, end: 20230705
  3. DOCETAXEL [Suspect]
     Active Substance: DOCETAXEL\DOCETAXEL ANHYDROUS
     Indication: Oesophageal adenocarcinoma
     Dosage: 100 MG
     Route: 042
     Dates: start: 20230523, end: 20230705
  4. OXALIPLATIN [Suspect]
     Active Substance: OXALIPLATIN
     Indication: Oesophageal adenocarcinoma
     Dosage: 170 MG
     Route: 042
     Dates: start: 20230523, end: 20230705
  5. ONTRUZANT [Suspect]
     Active Substance: TRASTUZUMAB-DTTB
     Indication: Oesophageal adenocarcinoma
     Dosage: 6 MG
     Route: 042
     Dates: start: 20230523, end: 20230705
  6. ONTRUZANT [Suspect]
     Active Substance: TRASTUZUMAB-DTTB
     Dosage: 6 MG,D43
     Route: 042
     Dates: start: 20230705
  7. ONTRUZANT [Suspect]
     Active Substance: TRASTUZUMAB-DTTB
     Dosage: 8 MG/KG, D1
     Route: 042
     Dates: start: 20230523
  8. PEMBROLIZUMAB [Suspect]
     Active Substance: PEMBROLIZUMAB
     Indication: Oesophageal adenocarcinoma
     Dosage: 200 MG
     Route: 042
     Dates: start: 20230523, end: 20230705

REACTIONS (8)
  - Sepsis [Recovered/Resolved]
  - Encephalopathy [Unknown]
  - Hepatic function abnormal [Unknown]
  - Circulatory collapse [Unknown]
  - Anastomotic leak [Unknown]
  - Respiratory failure [Unknown]
  - Renal failure [Unknown]
  - Product use in unapproved indication [Unknown]

NARRATIVE: CASE EVENT DATE: 20230820
